FAERS Safety Report 14907225 (Version 1)
Quarter: 2018Q2

REPORT INFORMATION
  Report Type: Spontaneous
  Country: US (occurrence: US)
  Receive Date: 20180517
  Receipt Date: 20180517
  Transmission Date: 20180711
  Serious: Yes (Death)
  Sender: FDA-Public Use
  Company Number: US-ROCHE-2124455

PATIENT
  Age: 53 Year
  Sex: Male

DRUGS (17)
  1. AZITHROMYCIN ANHYDROUS. [Concomitant]
     Active Substance: AZITHROMYCIN ANHYDROUS
  2. RIOMET [Concomitant]
     Active Substance: METFORMIN HYDROCHLORIDE
  3. AMOXICILLIN. [Concomitant]
     Active Substance: AMOXICILLIN
  4. COPAXONE [Concomitant]
     Active Substance: GLATIRAMER ACETATE
  5. METFORMIN [Concomitant]
     Active Substance: METFORMIN HYDROCHLORIDE
     Route: 065
  6. METOCLOPRAMID [Concomitant]
     Active Substance: METOCLOPRAMIDE
  7. OMEPRAZOLE. [Concomitant]
     Active Substance: OMEPRAZOLE
  8. PREDNISONE. [Concomitant]
     Active Substance: PREDNISONE
  9. WAL-TUSSIN [Concomitant]
     Active Substance: DEXTROMETHORPHAN HYDROBROMIDE
     Route: 065
  10. FLUTICASONE. [Concomitant]
     Active Substance: FLUTICASONE
     Route: 065
  11. SMZ-TMP [Concomitant]
     Active Substance: SULFAMETHOXAZOLE\TRIMETHOPRIM
  12. ALECENSA [Suspect]
     Active Substance: ALECTINIB HYDROCHLORIDE
     Indication: LUNG NEOPLASM MALIGNANT
     Dosage: 4 CAPSULES TWICE A DAY
     Route: 048
     Dates: start: 20171116, end: 201805
  13. FLOVENT [Concomitant]
     Active Substance: FLUTICASONE PROPIONATE
  14. OXYCODONE [Concomitant]
     Active Substance: OXYCODONE
  15. IBUPROFEN. [Concomitant]
     Active Substance: IBUPROFEN
  16. SALINE [Concomitant]
     Active Substance: SODIUM CHLORIDE
     Dosage: WOUND SPRAY
     Route: 065
  17. VENTOLIN [Concomitant]
     Active Substance: ALBUTEROL SULFATE
     Route: 065

REACTIONS (1)
  - Death [Fatal]

NARRATIVE: CASE EVENT DATE: 20180504
